FAERS Safety Report 25795207 (Version 1)
Quarter: 2025Q3

REPORT INFORMATION
  Report Type: Spontaneous
  Country: CN (occurrence: CN)
  Receive Date: 20250912
  Receipt Date: 20250912
  Transmission Date: 20251020
  Serious: Yes (Life-Threatening, Hospitalization, Other)
  Sender: ASTELLAS
  Company Number: CN-ASTELLAS-2025-AER-050145

PATIENT
  Age: 66 Year
  Sex: Female

DRUGS (5)
  1. TACROLIMUS [Suspect]
     Active Substance: TACROLIMUS
     Indication: Lung transplant
     Route: 065
  2. CILASTATIN SODIUM\IMIPENEM [Concomitant]
     Active Substance: CILASTATIN SODIUM\IMIPENEM
     Indication: Antibiotic prophylaxis
     Route: 065
  3. NOREPINEPHRINE [Concomitant]
     Active Substance: NOREPINEPHRINE
     Indication: Blood pressure measurement
     Route: 065
  4. NITRIC OXIDE [Concomitant]
     Active Substance: NITRIC OXIDE
     Indication: Transplant dysfunction
     Route: 055
  5. VASOPRESSIN [Concomitant]
     Active Substance: VASOPRESSIN
     Indication: Vasoconstriction
     Route: 065

REACTIONS (8)
  - Acinetobacter infection [Unknown]
  - Pseudomonas infection [Unknown]
  - Staphylococcal infection [Unknown]
  - Burkholderia cepacia complex infection [Unknown]
  - Septic shock [Unknown]
  - Disseminated intravascular coagulation [Unknown]
  - Gangrene [Unknown]
  - Off label use [Unknown]
